FAERS Safety Report 22250401 (Version 1)
Quarter: 2023Q2

REPORT INFORMATION
  Report Type: Spontaneous
  Country: None (occurrence: DE)
  Receive Date: 20230425
  Receipt Date: 20230425
  Transmission Date: 20230722
  Serious: Yes (Hospitalization)
  Sender: FDA-Public Use
  Company Number: DE-B.Braun Medical Inc.-2140767

PATIENT
  Age: 79 Year
  Sex: Female

DRUGS (10)
  1. METRONIDAZOLE [Suspect]
     Active Substance: METRONIDAZOLE
     Indication: Diverticulitis
     Route: 042
  2. CEFPODOXIME PROXETIL [Suspect]
     Active Substance: CEFPODOXIME PROXETIL
  3. Dekristol 1000 [Concomitant]
  4. LERCANIDIPINE [Concomitant]
     Active Substance: LERCANIDIPINE
  5. LEVOTHYROXINE SODIUM [Concomitant]
     Active Substance: LEVOTHYROXINE SODIUM
  6. METOPROLOL [Concomitant]
     Active Substance: METOPROLOL
  7. APIXABAN [Concomitant]
     Active Substance: APIXABAN
  8. ESOMEPRAZOLE [Concomitant]
     Active Substance: ESOMEPRAZOLE
  9. ATORVASTATIN [Concomitant]
     Active Substance: ATORVASTATIN
  10. ESCITALOPRAM [Concomitant]
     Active Substance: ESCITALOPRAM OXALATE

REACTIONS (2)
  - Product prescribing error [Unknown]
  - Fall [Unknown]
